FAERS Safety Report 14894221 (Version 2)
Quarter: 2018Q2

REPORT INFORMATION
  Report Type: Spontaneous
  Country: US (occurrence: US)
  Receive Date: 20180515
  Receipt Date: 20180521
  Transmission Date: 20180711
  Serious: Yes (Other)
  Sender: FDA-Public Use
  Company Number: PHEH2018US017883

PATIENT

DRUGS (1)
  1. COSENTYX [Suspect]
     Active Substance: SECUKINUMAB
     Indication: PRODUCT USED FOR UNKNOWN INDICATION
     Dosage: UNK
     Route: 065
     Dates: start: 201504

REACTIONS (4)
  - Haemoglobin decreased [Recovering/Resolving]
  - Breast abscess [Unknown]
  - Inappropriate schedule of drug administration [Unknown]
  - Skin papilloma [Unknown]

NARRATIVE: CASE EVENT DATE: 201802
